FAERS Safety Report 7226202-7 (Version None)
Quarter: 2011Q1

REPORT INFORMATION
  Report Type: 
  Country: None (occurrence: None)
  Receive Date: 20110114
  Receipt Date: 20110101
  Transmission Date: 20110831
  Serious: Yes (Hospitalization, Other)
  Sender: FDA-Public Use
  Company Number: PHHY2011GB00441

PATIENT
  Age: 32 Year
  Sex: Female
  Weight: 44 kg

DRUGS (4)
  1. PARACETAMOL [Suspect]
     Dosage: 105 MG/L, UNK
     Route: 048
  2. MULTIVITAMIN [Concomitant]
     Dosage: UNK
  3. CHLORDIAZEPOXIDE [Concomitant]
     Dosage: UNK
  4. PARACETAMOL [Suspect]
     Indication: GASTRITIS ALCOHOLIC
     Dosage: 4 G, DAILY
     Route: 048

REACTIONS (3)
  - ACUTE HEPATIC FAILURE [None]
  - NAUSEA [None]
  - AGITATION [None]
